FAERS Safety Report 5923987-4 (Version None)
Quarter: 2008Q4

REPORT INFORMATION
  Report Type: 
  Country: None (occurrence: None)
  Receive Date: 20081020
  Receipt Date: 20081007
  Transmission Date: 20090506
  Serious: Yes (Other)
  Sender: FDA-Public Use
  Company Number: PHHY2008ES23837

PATIENT
  Sex: Female

DRUGS (5)
  1. LOXIFAN [Suspect]
     Indication: BREAST CANCER
     Dosage: 2.5 MG DAILY
     Route: 048
     Dates: start: 20080226, end: 20080826
  2. BONIVA [Concomitant]
     Dosage: UNK
  3. EZETROL [Concomitant]
     Dosage: UNK
  4. OSTINE [Concomitant]
     Dosage: UNK
  5. AGIOLAX [Concomitant]

REACTIONS (4)
  - FOOT DEFORMITY [None]
  - HAND DEFORMITY [None]
  - PARAESTHESIA [None]
  - TOE OPERATION [None]
